FAERS Safety Report 5207965-9 (Version None)
Quarter: 2007Q1

REPORT INFORMATION
  Report Type: 
  Country: None (occurrence: None)
  Receive Date: 20070115
  Receipt Date: 20070109
  Transmission Date: 20070707
  Serious: Yes (Hospitalization)
  Sender: FDA-Public Use
  Company Number: CZ-ELI_LILLY_AND_COMPANY-CZ200701001729

PATIENT
  Age: 1 Day
  Sex: Female

DRUGS (5)
  1. ZYPREXA [Suspect]
     Dosage: UNK, UNK
     Route: 064
     Dates: start: 20061010, end: 20061030
  2. FERRONAT - SLOW RELEASE [Concomitant]
     Dosage: UNK, UNK
     Route: 064
     Dates: start: 20061012, end: 20061030
  3. ACIDUM FOLICUM [Concomitant]
     Dosage: UNK, UNK
     Route: 064
     Dates: start: 20061012, end: 20061030
  4. MAGNESIUM LACTATE [Concomitant]
     Dosage: UNK, UNK
     Route: 064
     Dates: start: 20060914, end: 20061030
  5. MARIJUANA [Concomitant]

REACTIONS (3)
  - DRUG EXPOSURE DURING PREGNANCY [None]
  - NEONATAL ASPHYXIA [None]
  - NEONATAL INFECTION [None]
